FAERS Safety Report 6818807-X (Version None)
Quarter: 2010Q2

REPORT INFORMATION
  Report Type: 
  Country: None (occurrence: None)
  Receive Date: 20100630
  Receipt Date: 20100625
  Transmission Date: 20101027
  Serious: Yes (Death)
  Sender: FDA-Public Use
  Company Number: 2010US002517

PATIENT
  Age: 67 Year
  Sex: Male

DRUGS (6)
  1. PROGRAF [Suspect]
     Indication: LIVER TRANSPLANT
     Dosage: 6 MG, /D
     Dates: start: 20090104
  2. PREDNISOLONE [Concomitant]
  3. MYCOPHENOLATE MOFETIL [Concomitant]
  4. TRIMETOPRIM (TRIMETHOPRIM) [Concomitant]
  5. USARCOL [Concomitant]
  6. VALGANCICLOVIR HCL [Concomitant]

REACTIONS (1)
  - LIVER TRANSPLANT [None]
